FAERS Safety Report 4983142-1 (Version None)
Quarter: 2006Q2

REPORT INFORMATION
  Report Type: 
  Country: None (occurrence: None)
  Receive Date: 20060426
  Receipt Date: 20060417
  Transmission Date: 20061013
  Serious: Yes (Hospitalization)
  Sender: FDA-Public Use
  Company Number: 2006UW06740

PATIENT
  Age: 22393 Day
  Sex: Male
  Weight: 123.9 kg

DRUGS (10)
  1. IRESSA [Suspect]
     Indication: GLIOBLASTOMA MULTIFORME
     Route: 048
     Dates: start: 20050126
  2. RAPAMUNE [Suspect]
     Indication: GLIOBLASTOMA MULTIFORME
     Route: 048
     Dates: start: 20050126
  3. AVALIDE [Concomitant]
     Dosage: 150/5.5 MG ONCE A DAY
     Route: 048
  4. DECADRON [Concomitant]
     Route: 048
  5. KEPPRA [Concomitant]
     Route: 048
  6. PEPCID [Concomitant]
     Route: 048
  7. LOVENOX [Concomitant]
     Route: 058
  8. MAGIC MOUTHWASH [Concomitant]
  9. PHENERGAN HCL [Concomitant]
     Route: 048
  10. ZOFRAN [Concomitant]
     Route: 048

REACTIONS (4)
  - ATELECTASIS [None]
  - DRUG TOXICITY [None]
  - HAEMOPHILUS INFECTION [None]
  - PNEUMONIA [None]
